FAERS Safety Report 22329398 (Version 1)
Quarter: 2023Q2

REPORT INFORMATION
  Report Type: Spontaneous
  Country: CN (occurrence: CN)
  Receive Date: 20230517
  Receipt Date: 20230517
  Transmission Date: 20230721
  Serious: Yes (Other)
  Sender: FDA-Public Use
  Company Number: None

PATIENT
  Age: 56 Year
  Sex: Female
  Weight: 50 kg

DRUGS (2)
  1. MANNITOL [Suspect]
     Active Substance: MANNITOL
     Indication: Dehydration
     Dosage: 250 MILLILITERS (ML), ONCE DAILY (DOSAGE FORM: INJECTION)
     Route: 041
     Dates: start: 20230509, end: 20230509
  2. MANNITOL [Suspect]
     Active Substance: MANNITOL
     Indication: Oedema

REACTIONS (3)
  - Pallor [Recovered/Resolved]
  - Flushing [Recovering/Resolving]
  - Heart rate increased [Recovered/Resolved]

NARRATIVE: CASE EVENT DATE: 20230509
